FAERS Safety Report 5090421-9 (Version None)
Quarter: 2006Q3

REPORT INFORMATION
  Report Type: 
  Country: None (occurrence: None)
  Receive Date: 20060828
  Receipt Date: 20060501
  Transmission Date: 20061208
  Serious: No
  Sender: FDA-Public Use
  Company Number: US-GLAXOSMITHKLINE-A0603877A

PATIENT
  Age: 37 Year
  Sex: Female

DRUGS (5)
  1. WELLBUTRIN XL [Suspect]
     Indication: DEPRESSION
     Dosage: 150MG PER DAY
     Route: 048
     Dates: start: 20060410
  2. PAXIL [Concomitant]
  3. ELAVIL [Concomitant]
  4. MUCINEX [Concomitant]
  5. SUDAFED 12 HOUR [Concomitant]

REACTIONS (2)
  - PRURITUS [None]
  - URTICARIA [None]
